FAERS Safety Report 10233921 (Version 1)
Quarter: 2014Q2

REPORT INFORMATION
  Report Type: Spontaneous
  Country: DE (occurrence: DE)
  Receive Date: 20140612
  Receipt Date: 20140612
  Transmission Date: 20141212
  Serious: Yes (Other)
  Sender: FDA-Public Use
  Company Number: DE-WATSON-2014-12046

PATIENT
  Age: 57 Year
  Sex: 0

DRUGS (2)
  1. VALPROIC ACID (UNKNOWN) [Suspect]
     Indication: SCHIZOAFFECTIVE DISORDER
     Dosage: UNKNOWN
     Route: 065
  2. LORAZEPAM (UNKNOWN) [Interacting]
     Indication: PRODUCT USED FOR UNKNOWN INDICATION
     Dosage: 6 MG, DAILY
     Route: 065

REACTIONS (3)
  - Hyperammonaemic encephalopathy [Recovered/Resolved]
  - Potentiating drug interaction [Recovered/Resolved]
  - Drug withdrawal syndrome [Recovered/Resolved]
